FAERS Safety Report 13553231 (Version 1)
Quarter: 2017Q2

REPORT INFORMATION
  Report Type: Spontaneous
  Country: JP (occurrence: JP)
  Receive Date: 20170517
  Receipt Date: 20170517
  Transmission Date: 20170830
  Serious: Yes (Death, Life-Threatening, Disabling, Other)
  Sender: FDA-Public Use
  Company Number: JP-ACCORD-051357

PATIENT
  Age: 8 Decade
  Sex: Male

DRUGS (2)
  1. FLUOROURACIL. [Suspect]
     Active Substance: FLUOROURACIL
     Indication: BASOSQUAMOUS CARCINOMA
     Dosage: FIRST DAY THROUGH THE FIFTH DAY
     Route: 041
  2. CISPLATIN. [Suspect]
     Active Substance: CISPLATIN
     Indication: BASOSQUAMOUS CARCINOMA
     Dosage: ON THE FIRST DAY

REACTIONS (9)
  - Diarrhoea [Unknown]
  - Multiple organ dysfunction syndrome [Fatal]
  - Hepatic function abnormal [Unknown]
  - Ototoxicity [Unknown]
  - Acute kidney injury [Unknown]
  - Drug ineffective [Unknown]
  - Hypoacusis [Unknown]
  - Bone marrow failure [Unknown]
  - Nausea [Unknown]
